FAERS Safety Report 8164296-5 (Version None)
Quarter: 2012Q1

REPORT INFORMATION
  Report Type: 
  Country: None (occurrence: None)
  Receive Date: 20120224
  Receipt Date: 20110321
  Transmission Date: 20120608
  Serious: No
  Sender: FDA-Public Use
  Company Number: US-MYLANLABS-2011S1003312

PATIENT
  Age: 51 Year
  Sex: Female
  Weight: 68.04 kg

DRUGS (2)
  1. ATENOLOL [Suspect]
     Indication: SYNCOPE
     Route: 048
     Dates: start: 20110208, end: 20110301
  2. ATENOLOL [Suspect]
     Indication: HEART RATE IRREGULAR
     Route: 048
     Dates: start: 20110208, end: 20110301

REACTIONS (5)
  - DECREASED INTEREST [None]
  - JOINT STIFFNESS [None]
  - FATIGUE [None]
  - FLATULENCE [None]
  - OEDEMA PERIPHERAL [None]
